FAERS Safety Report 6699889-5 (Version None)
Quarter: 2010Q2

REPORT INFORMATION
  Report Type: 
  Country: None (occurrence: None)
  Receive Date: 20100428
  Receipt Date: 20100421
  Transmission Date: 20101027
  Serious: Yes (Other)
  Sender: FDA-Public Use
  Company Number: GB-NOVOPROD-307448

PATIENT
  Age: 62 Year
  Sex: Male
  Weight: 103 kg

DRUGS (12)
  1. VICTOZA [Suspect]
     Indication: DIABETES MELLITUS
     Dosage: 6 MG, QD
     Route: 058
     Dates: start: 20100312
  2. VICTOZA [Suspect]
     Indication: OBESITY
  3. ASPIRIN [Concomitant]
     Indication: DIABETES MELLITUS
     Dosage: 75 MG, UNK
  4. ASPIRIN [Concomitant]
     Indication: PERIPHERAL VASCULAR DISORDER
  5. LEVOTHYROXINE [Concomitant]
     Indication: DRUG USE FOR UNKNOWN INDICATION
     Dosage: 100 UG, QD
  6. LISINOPRIL [Concomitant]
     Indication: HYPERTENSION
     Dosage: 40 MG, QD
  7. LISINOPRIL [Concomitant]
     Dosage: 20 MG, QD
  8. LISINOPRIL [Concomitant]
     Dosage: 10 MG, QD
  9. METFORMIN [Concomitant]
     Indication: DIABETES MELLITUS
     Dosage: 550 MG, QD
     Dates: start: 20100311
  10. PIOGLITAZONE [Concomitant]
     Indication: DIABETES MELLITUS
     Dosage: 15 MG, QD
     Dates: start: 20100311
  11. SIMVASTATIN [Concomitant]
     Indication: DIABETES MELLITUS
     Dosage: 40 MG, UNK
  12. SIMVASTATIN [Concomitant]
     Indication: PERIPHERAL VASCULAR DISORDER

REACTIONS (2)
  - BLOOD PRESSURE DECREASED [None]
  - DIZZINESS [None]
